FAERS Safety Report 15662604 (Version 1)
Quarter: 2018Q4

REPORT INFORMATION
  Report Type: Spontaneous
  Country: US (occurrence: US)
  Receive Date: 20181127
  Receipt Date: 20181127
  Transmission Date: 20190205
  Serious: Yes (Death)
  Sender: FDA-Public Use
  Company Number: US-SENTYNL THERAPEUTICS, INC.  -2059332

PATIENT
  Age: 48 Year
  Sex: Female

DRUGS (2)
  1. LEVORPHANOL TARTRATE. [Suspect]
     Active Substance: LEVORPHANOL TARTRATE
  2. TRAMADOL. [Suspect]
     Active Substance: TRAMADOL

REACTIONS (2)
  - Toxicity to various agents [Fatal]
  - Accidental death [Fatal]
